FAERS Safety Report 6821013-6 (Version None)
Quarter: 2010Q3

REPORT INFORMATION
  Report Type: 
  Country: None (occurrence: None)
  Receive Date: 20100707
  Receipt Date: 20071011
  Transmission Date: 20110219
  Serious: No
  Sender: FDA-Public Use
  Company Number: US-PFIZER INC-2007085883

PATIENT
  Sex: Male

DRUGS (16)
  1. ZOLOFT [Suspect]
     Indication: ANXIETY
     Route: 048
     Dates: start: 20070101
  2. ZOLOFT [Suspect]
     Indication: DEPRESSION
  3. BENTYL [Concomitant]
  4. XANAX [Concomitant]
  5. ALL OTHER THERAPEUTIC PRODUCTS [Concomitant]
  6. MULTIPLE VITAMINS [Concomitant]
  7. MULTIVITAMIN [Concomitant]
  8. OXYGEN [Concomitant]
  9. CITRUCEL [Concomitant]
  10. ALL OTHER THERAPEUTIC PRODUCTS [Concomitant]
  11. COMBIVENT [Concomitant]
  12. ALL OTHER THERAPEUTIC PRODUCTS [Concomitant]
  13. SPIRIVA [Concomitant]
  14. ACETYLSALICYLIC ACID [Concomitant]
  15. ALL OTHER THERAPEUTIC PRODUCTS [Concomitant]
  16. NEXIUM [Concomitant]

REACTIONS (3)
  - FALL [None]
  - HEADACHE [None]
  - ILL-DEFINED DISORDER [None]
